FAERS Safety Report 5075545-4 (Version None)
Quarter: 2006Q3

REPORT INFORMATION
  Report Type: 
  Country: None (occurrence: None)
  Receive Date: 20060809
  Receipt Date: 20060202
  Transmission Date: 20061208
  Serious: Yes (Life-Threatening, Hospitalization)
  Sender: FDA-Public Use
  Company Number: JP-ROCHE-434607

PATIENT
  Age: 71 Year
  Sex: Male

DRUGS (10)
  1. PANALDINE [Suspect]
     Indication: EMBOLIC CEREBRAL INFARCTION
     Route: 048
     Dates: start: 20051215, end: 20051218
  2. ACTIVASE [Suspect]
     Indication: EMBOLIC CEREBRAL INFARCTION
     Route: 065
     Dates: start: 20051212
  3. CLINDAMYCIN HCL [Concomitant]
     Route: 048
  4. PRIMPERAN TAB [Concomitant]
  5. NICOTINIC ACID [Concomitant]
     Route: 042
     Dates: start: 20051212
  6. PERDIPINE [Concomitant]
     Dates: start: 20051212
  7. RADICUT [Concomitant]
  8. DORMICUM [Concomitant]
  9. ACETYLSALICYLIC ACID SRT [Concomitant]
     Route: 048
  10. PRIMPERAN TAB [Concomitant]

REACTIONS (15)
  - BLOOD CREATININE INCREASED [None]
  - BLOOD PRESSURE DECREASED [None]
  - COMA [None]
  - DEHYDRATION [None]
  - DEPRESSED LEVEL OF CONSCIOUSNESS [None]
  - HAEMODIALYSIS [None]
  - HAEMORRHAGIC DIATHESIS [None]
  - HEPATIC ENZYME INCREASED [None]
  - HEPATORENAL FAILURE [None]
  - HYPERTHERMIA [None]
  - INFLAMMATION [None]
  - LIVER DISORDER [None]
  - PNEUMONIA [None]
  - RENAL DISORDER [None]
  - RESPIRATORY FAILURE [None]
